FAERS Safety Report 4385154-8 (Version None)
Quarter: 2004Q2

REPORT INFORMATION
  Report Type: 
  Country: None (occurrence: None)
  Receive Date: 20040624
  Receipt Date: 20040624
  Transmission Date: 20050107
  Serious: Yes (Other)
  Sender: FDA-Public Use
  Company Number: None

PATIENT
  Age: 60 Year
  Sex: Female
  Weight: 103.4201 kg

DRUGS (2)
  1. GLUCOPHAGE [Suspect]
     Indication: DIABETES MELLITUS NON-INSULIN-DEPENDENT
     Dosage: 500MG PO QD
     Route: 048
     Dates: start: 19990901, end: 20000601
  2. CELEBREX [Suspect]
     Indication: OSTEOARTHRITIS
     Dosage: 200 BID
     Dates: start: 19990901, end: 20000601

REACTIONS (1)
  - MUSCULOSKELETAL PAIN [None]
